FAERS Safety Report 6888508-0 (Version None)
Quarter: 2010Q3

REPORT INFORMATION
  Report Type: 
  Country: None (occurrence: None)
  Receive Date: 20100730
  Receipt Date: 20100719
  Transmission Date: 20110219
  Serious: Yes (Other)
  Sender: FDA-Public Use
  Company Number: PHHY2010AU47496

PATIENT
  Age: 23 Year
  Sex: Female

DRUGS (25)
  1. CLOZAPINE [Suspect]
     Indication: SCHIZOPHRENIA
     Dosage: 600 MG, QD
     Dates: start: 20061001
  2. CLOZAPINE [Suspect]
     Dosage: 550 MG, QD
     Dates: start: 20061101
  3. CLOZAPINE [Suspect]
     Dosage: 500 MG, QD
     Dates: start: 20061201
  4. CLOZAPINE [Suspect]
     Dosage: 450 MG, QD
     Dates: start: 20061201
  5. CLOZAPINE [Suspect]
     Dosage: 450 MG, QD
     Dates: start: 20070801
  6. CLOZAPINE [Suspect]
     Dosage: 400 MG, QD
     Dates: start: 20070901
  7. CLOZAPINE [Suspect]
     Dosage: 350 MG, QD
     Dates: start: 20080101
  8. CLOZAPINE [Suspect]
     Dosage: 300 MG, QD
     Dates: start: 20080401
  9. CLOZAPINE [Suspect]
     Dosage: 275 MG, QD
     Dates: start: 20080601
  10. CLOZAPINE [Suspect]
     Dosage: 250 MG, QD
     Dates: start: 20090301
  11. CLOZAPINE [Suspect]
     Dosage: 250 MG, QD
     Dates: start: 20091001
  12. AMISULPRIDE [Concomitant]
     Dosage: 200 MG, QD
     Dates: start: 20061001
  13. AMISULPRIDE [Concomitant]
     Dosage: 200 MG, QD
     Dates: start: 20061101
  14. AMISULPRIDE [Concomitant]
     Dosage: 200 MG, QD
     Dates: start: 20061201
  15. AMISULPRIDE [Concomitant]
     Dosage: 200 MG, QD
     Dates: start: 20061201
  16. AMISULPRIDE [Concomitant]
     Dosage: 300 MG, QD
     Dates: start: 20070801
  17. AMISULPRIDE [Concomitant]
     Dosage: 300 MG, QD
     Dates: start: 20070901
  18. AMISULPRIDE [Concomitant]
     Dosage: 275 MG, QD
     Dates: start: 20080101
  19. AMISULPRIDE [Concomitant]
     Dosage: 275 MG, QD
     Dates: start: 20080401
  20. AMISULPRIDE [Concomitant]
     Dosage: 275 MG, QD
     Dates: start: 20080601
  21. AMISULPRIDE [Concomitant]
     Dosage: 275 MG, QD
     Dates: start: 20090301
  22. AMISULPRIDE [Concomitant]
     Dosage: 200 MG, QD
     Dates: start: 20091001
  23. VALPROATE SODIUM [Concomitant]
     Dosage: 800 MG, QD AT NIGHT
  24. VALPROATE SODIUM [Concomitant]
     Dosage: 600 MG, QD AT NIGHT
     Dates: start: 20070601
  25. METFORMIN HCL [Concomitant]
     Dosage: 250 MG, QD
     Dates: start: 20070601

REACTIONS (9)
  - ACTIVITIES OF DAILY LIVING IMPAIRED [None]
  - BLOOD ALKALINE PHOSPHATASE INCREASED [None]
  - BLOOD TRIGLYCERIDES INCREASED [None]
  - FATIGUE [None]
  - GENERAL PHYSICAL HEALTH DETERIORATION [None]
  - HEPATIC STEATOSIS [None]
  - SLEEP APNOEA SYNDROME [None]
  - VITAMIN D DECREASED [None]
  - WEIGHT INCREASED [None]
